FAERS Safety Report 9321538 (Version 1)
Quarter: 2013Q2

REPORT INFORMATION
  Report Type: Spontaneous
  Country: AU (occurrence: None)
  Receive Date: 20130529
  Receipt Date: 20130529
  Transmission Date: 20140414
  Serious: Yes (Death)
  Sender: FDA-Public Use
  Company Number: 2013P1006233

PATIENT
  Age: 21 Year
  Sex: Male

DRUGS (7)
  1. ALPRAZOLAM [Suspect]
  2. AMPHETAMINE [Suspect]
  3. CITALOPRAM [Suspect]
  4. OXYCODONE [Suspect]
  5. COCAINE [Suspect]
  6. METHAMPHETAMINE [Suspect]
  7. DIAZEPAM [Suspect]

REACTIONS (2)
  - Sudden death [None]
  - Toxicity to various agents [None]
